FAERS Safety Report 8790890 (Version 2)
Quarter: 2013Q1

REPORT INFORMATION
  Report Type: Spontaneous
  Country: DE (occurrence: None)
  Receive Date: 20120910
  Receipt Date: 20121102
  Transmission Date: 20140127
  Serious: Yes (Other)
  Sender: FDA-Public Use
  Company Number: 2012MPI00391

PATIENT
  Sex: 0

DRUGS (1)
  1. ADCETRIS [Suspect]
     Indication: HAEMATOLOGICAL MALIGNANCY
     Route: 042

REACTIONS (2)
  - Critical illness polyneuropathy [None]
  - Sepsis [None]
